FAERS Safety Report 6850069-X (Version None)
Quarter: 2010Q3

REPORT INFORMATION
  Report Type: 
  Country: None (occurrence: None)
  Receive Date: 20100716
  Receipt Date: 20071009
  Transmission Date: 20110219
  Serious: No
  Sender: FDA-Public Use
  Company Number: US-PFIZER INC-2007086091

PATIENT
  Sex: Female
  Weight: 56.818 kg

DRUGS (4)
  1. CHANTIX [Suspect]
     Indication: SMOKING CESSATION THERAPY
     Dates: start: 20070930, end: 20071006
  2. SPIRIVA [Concomitant]
     Indication: EMPHYSEMA
  3. SEREVENT [Concomitant]
     Indication: EMPHYSEMA
     Route: 055
  4. PREMARIN [Concomitant]

REACTIONS (4)
  - ASTHENIA [None]
  - MALAISE [None]
  - NAUSEA [None]
  - ORAL DISORDER [None]
